FAERS Safety Report 9746016 (Version 1)
Quarter: 2013Q4

REPORT INFORMATION
  Report Type: Report from Study
  Country: AR (occurrence: AR)
  Receive Date: 20131211
  Receipt Date: 20131211
  Transmission Date: 20140711
  Serious: Yes (Hospitalization, Other)
  Sender: FDA-Public Use
  Company Number: PHHY2013AR144973

PATIENT
  Age: 71 Year
  Sex: Female

DRUGS (3)
  1. DIOVAN [Suspect]
     Indication: HYPERTENSION
     Dosage: 1 DF (80 MG), DAILY
     Route: 048
  2. DIOVAN [Suspect]
     Dosage: 0.5 DF (80 MG), DAILY
     Dates: end: 20131209
  3. DIOVAN [Suspect]
     Dosage: 1 DF (40 MG), DAILY
     Route: 048
     Dates: start: 20131209

REACTIONS (5)
  - Arrhythmia [Recovered/Resolved]
  - Depressed mood [Recovered/Resolved]
  - Sensation of heaviness [Recovered/Resolved]
  - Heart rate increased [Recovered/Resolved]
  - Blood pressure increased [Recovered/Resolved]
